FAERS Safety Report 18965241 (Version 1)
Quarter: 2021Q1

REPORT INFORMATION
  Report Type: Spontaneous
  Country: IL (occurrence: IL)
  Receive Date: 20210304
  Receipt Date: 20210304
  Transmission Date: 20210420
  Serious: No
  Sender: FDA-Public Use
  Company Number: IL-LUPIN PHARMACEUTICALS INC.-2021-02511

PATIENT
  Age: 82 Year
  Sex: Female

DRUGS (5)
  1. PREDNISOLONE. [Concomitant]
     Active Substance: PREDNISOLONE
     Indication: CHRONIC OBSTRUCTIVE PULMONARY DISEASE
     Dosage: RECEIVED OCCASIONAL TREATMENT
     Route: 042
  2. CLOBETASOL PROPIONATE OINTMENT [Suspect]
     Active Substance: CLOBETASOL PROPIONATE
     Dosage: EVERY OTHER DAY FOR 2 WEEKS
     Route: 061
  3. CLOBETASOL PROPIONATE OINTMENT [Suspect]
     Active Substance: CLOBETASOL PROPIONATE
     Indication: PEMPHIGOID
     Dosage: (EQUIVALENT TO 0.2?0.3MG) BID CONTINUED FOR 3 WEEKS.
     Route: 061
  4. CLOBETASOL PROPIONATE OINTMENT [Suspect]
     Active Substance: CLOBETASOL PROPIONATE
     Dosage: 3 DAYS ONCE A MONTH
     Route: 061
  5. CLOBETASOL PROPIONATE OINTMENT [Suspect]
     Active Substance: CLOBETASOL PROPIONATE
     Dosage: AT BEDTIME FOR 2 WEEKS, QD
     Route: 061

REACTIONS (1)
  - Oral candidiasis [Unknown]
